FAERS Safety Report 14790504 (Version 1)
Quarter: 2018Q2

REPORT INFORMATION
  Report Type: Spontaneous
  Country: US (occurrence: US)
  Receive Date: 20180423
  Receipt Date: 20180423
  Transmission Date: 20180711
  Serious: Yes (Hospitalization)
  Sender: FDA-Public Use
  Company Number: US-IMPAX LABORATORIES, INC-2018-IPXL-01265

PATIENT
  Sex: Female

DRUGS (4)
  1. PROSTAGLANDIN E1 [Suspect]
     Active Substance: ALPROSTADIL
     Dosage: UNK
     Route: 065
  2. DOPAMINE [Suspect]
     Active Substance: DOPAMINE\DOPAMINE HYDROCHLORIDE
     Indication: CARDIOGENIC SHOCK
     Dosage: UNK
     Route: 065
  3. ADRENACLICK [Suspect]
     Active Substance: EPINEPHRINE
     Indication: CARDIOGENIC SHOCK
     Dosage: UNK
     Route: 065
  4. PROSTAGLANDIN E1 [Suspect]
     Active Substance: ALPROSTADIL
     Indication: CARDIOGENIC SHOCK
     Dosage: 0.02 MG/KG/MIN
     Route: 065

REACTIONS (2)
  - Atelectasis [Recovered/Resolved]
  - Hypoxia [Recovered/Resolved]
